FAERS Safety Report 9391932 (Version 1)
Quarter: 2013Q3

REPORT INFORMATION
  Report Type: Report from Study
  Country: US (occurrence: US)
  Receive Date: 20130709
  Receipt Date: 20130709
  Transmission Date: 20140515
  Serious: Yes (Hospitalization)
  Sender: FDA-Public Use
  Company Number: US-009507513-1304CAN005497

PATIENT
  Age: 66 Year
  Sex: Male
  Weight: 42.4 kg

DRUGS (17)
  1. PRE TRIAL THERAPY [Suspect]
     Indication: TYPE 2 DIABETES MELLITUS
     Dosage: UNK
     Route: 048
     Dates: start: 20100726, end: 20101020
  2. ASPIRIN [Concomitant]
     Dosage: UNK
     Route: 048
     Dates: start: 2001
  3. AMLODIPINE BESYLATE [Concomitant]
     Dosage: UNK
     Route: 048
     Dates: start: 2009
  4. VITAMINS [Concomitant]
     Dosage: UNK
     Route: 048
     Dates: start: 2000
  5. CELEXA [Concomitant]
     Dosage: UNK
     Route: 048
     Dates: start: 2009
  6. CLARINEX (DESLORATADINE) [Concomitant]
     Dosage: UNK
     Route: 048
     Dates: start: 2001
  7. VITAMIN D [Concomitant]
     Dosage: UNK
     Route: 048
     Dates: start: 2009
  8. ANTARA [Concomitant]
     Dosage: UNK
     Route: 048
     Dates: start: 20100812
  9. OMEGA-3 MARINE TRIGLYCERIDES [Concomitant]
     Dosage: UNK
     Route: 048
     Dates: start: 2008
  10. HYDROCHLOROTHIAZIDE [Concomitant]
     Dosage: UNK
     Route: 048
     Dates: start: 1996
  11. ZESTRIL [Concomitant]
     Dosage: UNK
     Route: 048
     Dates: start: 1996
  12. GLUCOPHAGE [Concomitant]
     Dosage: UNK
     Route: 048
     Dates: start: 200907
  13. TOPROL XL TABLETS [Concomitant]
     Dosage: UNK
     Route: 048
     Dates: start: 2009
  14. NASONEX [Concomitant]
     Dosage: UNK
     Route: 045
     Dates: start: 2002
  15. PRILOSEC [Concomitant]
     Dosage: UNK
     Route: 048
     Dates: start: 200907
  16. CRESTOR [Concomitant]
     Dosage: UNK
     Route: 048
     Dates: start: 200907
  17. HYTRIN [Concomitant]
     Dosage: UNK
     Route: 048
     Dates: start: 2009

REACTIONS (1)
  - Bladder mass [Recovered/Resolved]
